FAERS Safety Report 14983195 (Version 1)
Quarter: 2018Q2

REPORT INFORMATION
  Report Type: Spontaneous
  Country: US (occurrence: US)
  Receive Date: 20180607
  Receipt Date: 20180607
  Transmission Date: 20180711
  Serious: No
  Sender: FDA-Public Use
  Company Number: US-JNJFOC-20180538834

PATIENT
  Age: 78 Year
  Sex: Female
  Weight: 63.5 kg

DRUGS (4)
  1. IMODIUM [Suspect]
     Active Substance: LOPERAMIDE HYDROCHLORIDE
     Route: 065
  2. ATROPINE SULFATE. [Suspect]
     Active Substance: ATROPINE SULFATE
     Indication: DIARRHOEA
     Route: 065
  3. CHOLESTYRAMINE. [Suspect]
     Active Substance: CHOLESTYRAMINE
     Indication: DIARRHOEA
     Route: 065
  4. IMODIUM [Suspect]
     Active Substance: LOPERAMIDE HYDROCHLORIDE
     Indication: DIARRHOEA
     Route: 065

REACTIONS (1)
  - Drug ineffective [Unknown]
